FAERS Safety Report 9002181 (Version 1)
Quarter: 2013Q1

REPORT INFORMATION
  Report Type: Spontaneous
  Country: US (occurrence: None)
  Receive Date: 20130103
  Receipt Date: 20130103
  Transmission Date: 20140127
  Serious: Yes (Other)
  Sender: FDA-Public Use
  Company Number: None

PATIENT
  Age: 42 Year
  Sex: Male
  Weight: 103.6 kg

DRUGS (4)
  1. MIRTAZAPINE [Suspect]
     Indication: BIPOLAR I DISORDER
     Dosage: 30 MG  EVERY DAY  PO
     Route: 048
     Dates: start: 20070828, end: 20100129
  2. MIRTAZAPINE [Suspect]
     Indication: PANIC DISORDER
     Dosage: 30 MG  EVERY DAY  PO
     Route: 048
     Dates: start: 20070828, end: 20100129
  3. MIRTAZAPINE [Suspect]
     Dosage: 30 MG  EVERY DAY  PO
     Route: 048
     Dates: start: 20070828, end: 20100129
  4. MIRTAZAPINE [Suspect]
     Dosage: 30 MG  EVERY DAY  PO
     Route: 048
     Dates: start: 20070828, end: 20100129

REACTIONS (2)
  - Treatment failure [None]
  - Therapeutic response decreased [None]
